FAERS Safety Report 10470624 (Version 2)
Quarter: 2015Q1

REPORT INFORMATION
  Report Type: Spontaneous
  Country: US (occurrence: US)
  Receive Date: 20140923
  Receipt Date: 20150202
  Transmission Date: 20150720
  Serious: Yes (Death, Life-Threatening, Hospitalization, Other)
  Sender: FDA-Public Use
  Company Number: US-009507513-1409USA011173

PATIENT
  Sex: Female
  Weight: 74.83 kg

DRUGS (4)
  1. JANUMET XR [Suspect]
     Active Substance: METFORMIN HYDROCHLORIDE\SITAGLIPTIN PHOSPHATE
     Indication: TYPE 2 DIABETES MELLITUS
     Dosage: 50-1000 MG, QD
     Route: 048
     Dates: start: 20131005, end: 20140113
  2. JANUMET [Suspect]
     Active Substance: METFORMIN HYDROCHLORIDE\SITAGLIPTIN PHOSPHATE
     Dosage: 50-1000 MG, QD
     Route: 048
     Dates: start: 20120925, end: 20130427
  3. VICTOZA [Suspect]
     Active Substance: LIRAGLUTIDE
     Dosage: 18 MG/ 3ML PEN QD
     Route: 065
     Dates: start: 20131103, end: 20131203
  4. JANUMET [Suspect]
     Active Substance: METFORMIN HYDROCHLORIDE\SITAGLIPTIN PHOSPHATE
     Indication: TYPE 2 DIABETES MELLITUS
     Dosage: 50-1000 MG, QD
     Route: 048
     Dates: start: 20090427, end: 20120413

REACTIONS (14)
  - Stent placement [Unknown]
  - Impaired gastric emptying [Unknown]
  - Radiotherapy [Unknown]
  - Hypercholesterolaemia [Unknown]
  - Hiatus hernia [Unknown]
  - Coronary artery disease [Unknown]
  - Percutaneous coronary intervention [Unknown]
  - Arterial occlusive disease [Unknown]
  - Bile duct stent insertion [Unknown]
  - Death [Fatal]
  - Pancreatitis chronic [Not Recovered/Not Resolved]
  - Gastritis [Unknown]
  - Inappropriate schedule of drug administration [Unknown]
  - Adenocarcinoma pancreas [Unknown]

NARRATIVE: CASE EVENT DATE: 2009
